FAERS Safety Report 9455351 (Version 1)
Quarter: 2013Q3

REPORT INFORMATION
  Report Type: Report from Study
  Country: US (occurrence: US)
  Receive Date: 20130813
  Receipt Date: 20130813
  Transmission Date: 20140515
  Serious: Yes (Other)
  Sender: FDA-Public Use
  Company Number: PHHY2013US084140

PATIENT
  Age: 35 Year
  Sex: Female

DRUGS (7)
  1. GILENYA [Suspect]
     Indication: MULTIPLE SCLEROSIS
     Dosage: 0.5 MG, QD
     Route: 048
     Dates: start: 20110830, end: 20120727
  2. WELLBUTRIN [Concomitant]
     Dosage: 300 MG, UNK
  3. FAMCICLOVIR [Concomitant]
     Dosage: 250 MG, UNK
  4. NASONEX [Concomitant]
  5. ALDACTONE [Concomitant]
     Dosage: 25 MG, UNK
  6. ADDERALL [Concomitant]
  7. ZONISAMIDE [Concomitant]

REACTIONS (13)
  - Electrocardiogram QT prolonged [Recovered/Resolved]
  - Syncope [Recovered/Resolved]
  - Blood creatinine increased [Recovering/Resolving]
  - Blood glucose increased [Recovering/Resolving]
  - Blood potassium decreased [Recovering/Resolving]
  - Blood chloride increased [Recovering/Resolving]
  - Electrocardiogram abnormal [Recovering/Resolving]
  - Tinnitus [Recovering/Resolving]
  - Hypoaesthesia [Recovering/Resolving]
  - Feeling abnormal [Recovering/Resolving]
  - Granulocyte count increased [Recovering/Resolving]
  - Dizziness [Recovering/Resolving]
  - Lymphocyte count decreased [Recovering/Resolving]
